FAERS Safety Report 6860908-4 (Version None)
Quarter: 2010Q3

REPORT INFORMATION
  Report Type: 
  Country: None (occurrence: None)
  Receive Date: 20100715
  Receipt Date: 20100703
  Transmission Date: 20110219
  Serious: Yes (Other)
  Sender: FDA-Public Use
  Company Number: 2010SP001804

PATIENT
  Age: 40 Year
  Sex: Female
  Weight: 63.5 kg

DRUGS (4)
  1. OMNARIS [Suspect]
     Indication: RHINITIS ALLERGIC
     Dosage: 200UG;QD;NASAL
     Route: 045
     Dates: start: 20100501
  2. MINOCIN [Suspect]
     Indication: LICHEN PLANUS
     Dosage: 100 MG; QD; ORAL
     Route: 048
     Dates: start: 20100501, end: 20100620
  3. MINOCIN [Suspect]
     Indication: LICHEN PLANUS
     Dosage: 100 MG; QD; ORAL
     Route: 048
     Dates: start: 20100618, end: 20100622
  4. SYMBICORT [Concomitant]

REACTIONS (8)
  - ARTHRALGIA [None]
  - DYSPEPSIA [None]
  - HEPATIC ENZYME INCREASED [None]
  - MENINGITIS VIRAL [None]
  - PAIN [None]
  - RASH PUSTULAR [None]
  - SERUM SICKNESS-LIKE REACTION [None]
  - WHITE BLOOD CELL COUNT DECREASED [None]
